FAERS Safety Report 9906681 (Version 3)
Quarter: 2014Q1

REPORT INFORMATION
  Report Type: Spontaneous
  Country: US (occurrence: US)
  Receive Date: 20140218
  Receipt Date: 20140312
  Transmission Date: 20141002
  Serious: Yes (Hospitalization)
  Sender: FDA-Public Use
  Company Number: US-PFIZER INC-2014043933

PATIENT
  Age: 60 Year
  Sex: Female
  Weight: 65.76 kg

DRUGS (4)
  1. EFFEXOR XR [Suspect]
     Dosage: 150 MG, 1X/DAY
     Route: 048
     Dates: end: 20131227
  2. LAMICTAL [Concomitant]
     Dosage: UNK
  3. PRISTIQ [Concomitant]
     Dosage: UNK
     Dates: start: 2014
  4. CLONAZEPAM [Concomitant]
     Dosage: UNK

REACTIONS (7)
  - Road traffic accident [Unknown]
  - Abnormal dreams [Unknown]
  - Insomnia [Unknown]
  - Decreased interest [Unknown]
  - Irritability [Unknown]
  - Crying [Unknown]
  - Depressed mood [Unknown]
